FAERS Safety Report 24691855 (Version 1)
Quarter: 2024Q4

REPORT INFORMATION
  Report Type: Spontaneous
  Country: GB (occurrence: GB)
  Receive Date: 20241203
  Receipt Date: 20241203
  Transmission Date: 20250115
  Serious: Yes (Other)
  Sender: ASTELLAS
  Company Number: GB-MHRA-TPP14130681C10555271YC1732796289424

PATIENT
  Age: 74 Year
  Sex: Female
  Weight: 94 kg

DRUGS (12)
  1. MIRABEGRON [Suspect]
     Active Substance: MIRABEGRON
     Indication: Urinary tract disorder
     Dosage: FOR URINARY F...
     Route: 065
     Dates: start: 20241121
  2. MINERAL OIL\PARAFFIN [Concomitant]
     Active Substance: MINERAL OIL\PARAFFIN
     Indication: Product used for unknown indication
     Dosage: TO BE USED AS A SOAP SUBSTITUTE (FOR MILD TO MO...
     Route: 065
     Dates: start: 20240912, end: 20241012
  3. AMOXICILLIN [Concomitant]
     Active Substance: AMOXICILLIN
     Indication: Product used for unknown indication
     Dosage: ACUTE COUGH (ADULTS): ONE CAPSULE TO BE TAKEN T...
     Route: 065
     Dates: start: 20241007, end: 20241012
  4. NITROFURANTOIN [Concomitant]
     Active Substance: NITROFURANTOIN
     Indication: Urinary tract infection
     Dosage: TAKE ONE DAILY AT NIGHT AS UTI PROPHYLAXIS
     Route: 065
     Dates: start: 20240624
  5. NOVORAPID [Concomitant]
     Active Substance: INSULIN ASPART
     Indication: Product used for unknown indication
     Dosage: TO BE ADMINISTERED IMMEDIATELY BEFORE OR SOON A...
     Route: 065
     Dates: start: 20240815
  6. AMITRIPTYLINE HYDROCHLORIDE [Concomitant]
     Active Substance: AMITRIPTYLINE HYDROCHLORIDE
     Indication: Pain
     Dosage: ONE TABLET TO BE TAKEN TO HELP PAIN CONTROL
     Route: 065
     Dates: start: 20240118
  7. BENSERAZIDE HYDROCHLORIDE\LEVODOPA [Concomitant]
     Active Substance: BENSERAZIDE HYDROCHLORIDE\LEVODOPA
     Indication: Product used for unknown indication
     Dosage: TAKE ONE TABLET FOUR TIMES DAILY (8AM, 11AM, 2...
     Route: 065
     Dates: start: 20240118
  8. CODEINE PHOSPHATE [Concomitant]
     Active Substance: CODEINE PHOSPHATE
     Indication: Product used for unknown indication
     Dosage: ONE TABLETS  TO BE TAKEN UP TO FOUR TIMES A DAY...
     Route: 065
     Dates: start: 20240118
  9. MESALAMINE [Concomitant]
     Active Substance: MESALAMINE
     Indication: Product used for unknown indication
     Dosage: ONE TO BE TAKEN TWICE DAILY
     Route: 065
     Dates: start: 20240118
  10. ACETAMINOPHEN [Concomitant]
     Active Substance: ACETAMINOPHEN
     Indication: Product used for unknown indication
     Dosage: TWO TABLETS TO BE TAKEN UP TO FOUR TIMES A DAY ...
     Route: 065
     Dates: start: 20240118
  11. PREGABALIN [Concomitant]
     Active Substance: PREGABALIN
     Indication: Product used for unknown indication
     Dosage: ONE IN MORNING AND ONE AT NIGHT
     Route: 065
     Dates: start: 20240118
  12. LANTUS [Concomitant]
     Active Substance: INSULIN GLARGINE
     Indication: Product used for unknown indication
     Dosage: TO BE ADMINISTERED BY SUBCUTANEOUS INJECTION AS...
     Route: 058
     Dates: start: 20240815

REACTIONS (1)
  - Hallucination [Recovered/Resolved]
